FAERS Safety Report 10130434 (Version 1)
Quarter: 2014Q2

REPORT INFORMATION
  Report Type: Spontaneous
  Country: TR (occurrence: TR)
  Receive Date: 20140428
  Receipt Date: 20140428
  Transmission Date: 20141212
  Serious: Yes (Other)
  Sender: FDA-Public Use
  Company Number: TR-JNJFOC-20140416354

PATIENT
  Sex: 0

DRUGS (4)
  1. XARELTO [Suspect]
     Indication: EMBOLISM VENOUS
     Route: 048
  2. XARELTO [Suspect]
     Indication: EMBOLISM VENOUS
     Route: 048
  3. XARELTO [Suspect]
     Indication: DEEP VEIN THROMBOSIS
     Route: 048
  4. XARELTO [Suspect]
     Indication: DEEP VEIN THROMBOSIS
     Route: 048

REACTIONS (1)
  - Deep vein thrombosis [Unknown]
